FAERS Safety Report 16318299 (Version 1)
Quarter: 2019Q2

REPORT INFORMATION
  Report Type: Spontaneous
  Country: IT (occurrence: IT)
  Receive Date: 20190516
  Receipt Date: 20190516
  Transmission Date: 20190711
  Serious: Yes (Other)
  Sender: FDA-Public Use
  Company Number: IT-SUN PHARMACEUTICAL INDUSTRIES LTD-2019RR-207919

PATIENT
  Age: 76 Year
  Sex: Female
  Weight: 83 kg

DRUGS (4)
  1. FLUOROURACIL. [Suspect]
     Active Substance: FLUOROURACIL
     Indication: RECTAL CANCER
     Dosage: 570 MILLIGRAM, CYCLICAL
     Route: 040
     Dates: start: 20190115, end: 20190326
  2. OXALIPLATIN. [Suspect]
     Active Substance: OXALIPLATIN
     Indication: RECTAL CANCER
     Dosage: 160 MILLIGRAM, CYCLICAL
     Route: 042
     Dates: start: 20190115, end: 20190326
  3. FLUOROURACIL. [Suspect]
     Active Substance: FLUOROURACIL
     Dosage: 3420 MILLIGRAM, CYCLICAL
     Route: 042
     Dates: start: 20190115, end: 20190326
  4. LEVOLEUCOVORIN. [Concomitant]
     Active Substance: LEVOLEUCOVORIN
     Indication: RECTAL CANCER
     Dosage: 285 MILLIGRAM, CYCLICAL
     Route: 042
     Dates: start: 20190115, end: 20190326

REACTIONS (3)
  - Amnesia [Recovering/Resolving]
  - Irritability [Recovering/Resolving]
  - Disorientation [Recovering/Resolving]

NARRATIVE: CASE EVENT DATE: 20190320
